FAERS Safety Report 9988229 (Version 3)
Quarter: 2014Q2

REPORT INFORMATION
  Report Type: Spontaneous
  Country: US (occurrence: US)
  Receive Date: 20140309
  Receipt Date: 20140430
  Transmission Date: 20141212
  Serious: No
  Sender: FDA-Public Use
  Company Number: US-009507513-1402USA012773

PATIENT
  Age: 60 Year
  Sex: Male

DRUGS (12)
  1. PEGINTRON [Suspect]
     Indication: HEPATITIS C
     Dosage: 0.5CC, ONCE A WEEK, REDIPEN/UNK, Q7DAYS
     Route: 058
     Dates: start: 20130904
  2. REBETOL [Suspect]
     Indication: HEPATITIS C
     Dosage: 600 MG AM AND PM, B.I.D. (TWICE A DAY)/1200MG, B.I.D. (TWICE A DAY)
     Route: 048
     Dates: start: 20130904
  3. TELAPREVIR [Suspect]
     Indication: HEPATITIS C
     Dosage: 2 CAPSULES, Q8H (EVERY EIGHT HOURS)/750MG-A.M./1500MG-P.M., T.I.D. (THREE TIMES A DAY)
     Route: 048
     Dates: start: 20131004
  4. PROZAC [Concomitant]
     Dosage: 1 PO QD
     Route: 048
  5. BENTYL [Concomitant]
     Dosage: 1 3X A DAY
  6. PRILOSEC [Concomitant]
     Dosage: UNK, DAILY
  7. TRAZODONE HYDROCHLORIDE [Concomitant]
     Dosage: UNK, DAILY / II AT HS
  8. PAXIL [Concomitant]
     Dosage: UNK, DAILY
     Dates: start: 201311
  9. HYDROCODONE [Concomitant]
     Dosage: UNK, T.I.D.
  10. DICYCLOMINE HYDROCHLORIDE [Concomitant]
     Dosage: UNK, Q.I.D.
  11. BENADRYL [Concomitant]
     Dosage: UNK, DAILY
  12. CELEXA [Concomitant]

REACTIONS (29)
  - Emotional disorder [Unknown]
  - Mood altered [Unknown]
  - Groin pain [Unknown]
  - Hypersomnia [Unknown]
  - Contusion [Unknown]
  - Skin atrophy [Unknown]
  - Appetite disorder [Unknown]
  - Muscle atrophy [Unknown]
  - Gastrointestinal motility disorder [Unknown]
  - Anger [Unknown]
  - Hair texture abnormal [Unknown]
  - Memory impairment [Unknown]
  - Amnesia [Unknown]
  - Disturbance in attention [Unknown]
  - Irritability [Unknown]
  - Abdominal pain upper [Unknown]
  - Alopecia [Unknown]
  - Weight decreased [Unknown]
  - Blood pressure increased [Unknown]
  - Injection site erythema [Unknown]
  - Pyrexia [Unknown]
  - Vomiting [Unknown]
  - Drug effect decreased [Unknown]
  - Diarrhoea [Unknown]
  - Vomiting [Unknown]
  - Nausea [Unknown]
  - Pyrexia [Unknown]
  - Weight decreased [Unknown]
  - Chills [Unknown]
